FAERS Safety Report 20746713 (Version 1)
Quarter: 2022Q2

REPORT INFORMATION
  Report Type: Spontaneous
  Country: US (occurrence: US)
  Receive Date: 20220425
  Receipt Date: 20220425
  Transmission Date: 20220721
  Serious: No
  Sender: FDA-Public Use
  Company Number: US-ABBVIE-22K-163-4328711-00

PATIENT
  Age: 51 Year
  Sex: Female
  Weight: 92.616 kg

DRUGS (5)
  1. SKYRIZI [Suspect]
     Active Substance: RISANKIZUMAB-RZAA
     Indication: Psoriasis
     Route: 058
     Dates: start: 202112
  2. SYNTHROID [Concomitant]
     Active Substance: LEVOTHYROXINE SODIUM
     Indication: Hypothyroidism
     Route: 065
  3. VERAPAMIL [Concomitant]
     Active Substance: VERAPAMIL HYDROCHLORIDE
     Indication: Hypertension
     Route: 065
  4. HYDROCHLOROTHIAZIDE [Concomitant]
     Active Substance: HYDROCHLOROTHIAZIDE
     Indication: Hypertension
     Route: 065
  5. PROTONIX [Concomitant]
     Active Substance: PANTOPRAZOLE SODIUM
     Indication: Gastrooesophageal reflux disease
     Route: 065

REACTIONS (8)
  - COVID-19 [Unknown]
  - Hypertension [Not Recovered/Not Resolved]
  - Autonomic nervous system imbalance [Unknown]
  - Visual impairment [Unknown]
  - Presyncope [Unknown]
  - Muscle fatigue [Unknown]
  - Vision blurred [Unknown]
  - Tachycardia [Unknown]

NARRATIVE: CASE EVENT DATE: 20220201
